FAERS Safety Report 5865719-4 (Version None)
Quarter: 2008Q3

REPORT INFORMATION
  Report Type: 
  Country: None (occurrence: None)
  Receive Date: 20080829
  Receipt Date: 20080826
  Transmission Date: 20090109
  Serious: Yes (Death, Hospitalization, Other)
  Sender: FDA-Public Use
  Company Number: US-ABBOTT-08P-163-0472666-00

PATIENT
  Sex: Female
  Weight: 113.5 kg

DRUGS (3)
  1. HUMIRA [Suspect]
     Indication: RHEUMATOID ARTHRITIS
     Route: 058
  2. VICODIN ES [Suspect]
     Indication: PAIN
     Route: 048
  3. DICLOFENAC DIETHYLAMINE [Concomitant]
     Indication: ANTIINFLAMMATORY THERAPY

REACTIONS (3)
  - BONE NEOPLASM MALIGNANT [None]
  - DYSPNOEA [None]
  - MALIGNANT MELANOMA [None]
